FAERS Safety Report 9002342 (Version 3)
Quarter: 2013Q2

REPORT INFORMATION
  Report Type: Report from Study
  Country: FR (occurrence: FR)
  Receive Date: 20130107
  Receipt Date: 20130405
  Transmission Date: 20140414
  Serious: Yes (Hospitalization)
  Sender: FDA-Public Use
  Company Number: PHHY2012FR122432

PATIENT
  Sex: 0

DRUGS (5)
  1. ALISKIREN [Suspect]
     Indication: HYPERTENSION
     Dosage: 300 MG, QD
     Route: 048
     Dates: start: 20100129
  2. NEBILOX [Concomitant]
     Indication: HYPERTENSION
     Dosage: 2.5 MG, QD
  3. LERCAN [Concomitant]
     Indication: HYPERTENSION
     Dosage: 20 MG, QD
  4. HYPERIUM [Concomitant]
     Indication: HYPERTENSION
     Dosage: UNK UKN, QD
  5. LASILIX [Concomitant]
     Indication: HYPERTENSION
     Dosage: 40 MG, BID

REACTIONS (6)
  - Malaise [Unknown]
  - Cerebrovascular accident [Recovered/Resolved]
  - Transient ischaemic attack [Unknown]
  - Loss of consciousness [Unknown]
  - Vertigo positional [Recovered/Resolved]
  - Tongue biting [Unknown]
